FAERS Safety Report 6069365-1 (Version None)
Quarter: 2009Q1

REPORT INFORMATION
  Report Type: 
  Country: None (occurrence: None)
  Receive Date: 20090206
  Receipt Date: 20090130
  Transmission Date: 20090719
  Serious: Yes (Other)
  Sender: FDA-Public Use
  Company Number: US-PFIZER INC-2008063961

PATIENT
  Sex: Female
  Weight: 118.37 kg

DRUGS (15)
  1. LYRICA [Suspect]
     Indication: SPINAL COLUMN STENOSIS
     Route: 048
     Dates: start: 20080101
  2. LYRICA [Suspect]
     Indication: BACK PAIN
  3. CHANTIX [Suspect]
     Indication: SMOKING CESSATION THERAPY
     Dosage: UNKNOWN
     Dates: start: 20080421
  4. CHANTIX [Suspect]
     Indication: TOBACCO ABUSE
  5. VYTORIN [Concomitant]
     Dosage: 10/80MG DAILY
     Route: 048
  6. LISINOPRIL [Concomitant]
     Dosage: 20 MG, 1X/DAY
     Route: 048
  7. TRICOR [Concomitant]
     Dosage: 140 MG, 1X/DAY
     Route: 048
  8. PLAVIX [Concomitant]
     Dosage: 75 MG, 1X/DAY
     Route: 048
  9. LASIX [Concomitant]
     Dosage: 40 MG, 1X/DAY
     Route: 048
  10. ACETYLSALICYLIC ACID SRT [Concomitant]
     Dosage: 81 MG, 1X/DAY
     Route: 048
  11. LOVAZA [Concomitant]
  12. COQ-10 ST [Concomitant]
  13. STOOL SOFTENER [Concomitant]
  14. LAXATIVES [Concomitant]
  15. PREVACID [Concomitant]
     Dosage: 30 MG, 1X/DAY

REACTIONS (2)
  - ACQUIRED OESOPHAGEAL WEB [None]
  - TREMOR [None]
